FAERS Safety Report 6228095-3 (Version None)
Quarter: 2009Q2

REPORT INFORMATION
  Report Type: 
  Country: None (occurrence: None)
  Receive Date: 20090610
  Receipt Date: 20090610
  Transmission Date: 20091009
  Serious: Yes (Other)
  Sender: FDA-Public Use
  Company Number: None

PATIENT
  Age: 57 Year
  Sex: Female
  Weight: 102.0593 kg

DRUGS (1)
  1. ALPHAGAN [Suspect]
     Indication: INTRAOCULAR PRESSURE INCREASED
     Dosage: 1 DROP IN EACH EYE 2 X DAY INTRAOCULAR
     Route: 031
     Dates: start: 20070101, end: 20090518

REACTIONS (4)
  - CONDITION AGGRAVATED [None]
  - CONJUNCTIVITIS [None]
  - HYPERSENSITIVITY [None]
  - INTRAOCULAR PRESSURE INCREASED [None]
